FAERS Safety Report 19258216 (Version 4)
Quarter: 2021Q3

REPORT INFORMATION
  Report Type: Spontaneous
  Country: VE (occurrence: VE)
  Receive Date: 20210514
  Receipt Date: 20210813
  Transmission Date: 20211014
  Serious: Yes (Death, Hospitalization, Other)
  Sender: FDA-Public Use
  Company Number: NVSC2021VE027737

PATIENT
  Sex: Female

DRUGS (3)
  1. GLIVEC [Suspect]
     Active Substance: IMATINIB MESYLATE
     Dosage: 800 MG, QD
     Route: 065
  2. GLIVEC [Suspect]
     Active Substance: IMATINIB MESYLATE
     Dosage: 600 MG
     Route: 065
  3. GLIVEC [Suspect]
     Active Substance: IMATINIB MESYLATE
     Indication: CHRONIC MYELOID LEUKAEMIA
     Dosage: 400 MG, QD (4 X 100 MG)
     Route: 048

REACTIONS (20)
  - Death [Fatal]
  - Blast cells present [Unknown]
  - Abdominal pain [Unknown]
  - Leukopenia [Unknown]
  - Food intolerance [Unknown]
  - White blood cell count decreased [Unknown]
  - Nausea [Not Recovered/Not Resolved]
  - Chest discomfort [Unknown]
  - Discomfort [Not Recovered/Not Resolved]
  - Blast crisis in myelogenous leukaemia [Unknown]
  - Haemoglobin decreased [Unknown]
  - Vomiting [Not Recovered/Not Resolved]
  - Musculoskeletal chest pain [Unknown]
  - Headache [Unknown]
  - White blood cell count increased [Unknown]
  - Malaise [Not Recovered/Not Resolved]
  - Platelet count decreased [Unknown]
  - General physical health deterioration [Unknown]
  - Influenza [Unknown]
  - Pneumonia [Recovering/Resolving]
